FAERS Safety Report 24031824 (Version 1)
Quarter: 2024Q2

REPORT INFORMATION
  Report Type: Spontaneous
  Country: US (occurrence: US)
  Receive Date: 20240629
  Receipt Date: 20240629
  Transmission Date: 20240716
  Serious: Yes (Life-Threatening, Hospitalization, Other)
  Sender: FDA-Public Use
  Company Number: US-MLMSERVICE-20240613-PI099086-00218-1

PATIENT
  Age: 43 Year
  Sex: Male

DRUGS (2)
  1. METHOTREXATE [Suspect]
     Active Substance: METHOTREXATE
     Indication: Psoriasis
     Dosage: 15 MILLIGRAM, ONCE A DAY (10 MG OF METHOTREXATE TWICE WEEKLY BY A PHYSICIAN)
     Route: 065
  2. KEFLEX [Concomitant]
     Active Substance: CEPHALEXIN
     Indication: Urinary tract infection
     Dosage: UNK
     Route: 065

REACTIONS (13)
  - Acute kidney injury [Unknown]
  - Enterococcal infection [Unknown]
  - Opportunistic infection [Unknown]
  - Respiratory failure [Unknown]
  - Renal failure [Unknown]
  - Septic shock [Unknown]
  - Staphylococcal infection [Unknown]
  - Accidental overdose [Unknown]
  - Intentional product misuse [Unknown]
  - Inappropriate schedule of product administration [Unknown]
  - Neutropenia [Unknown]
  - Pancytopenia [Unknown]
  - Hyperbilirubinaemia [Unknown]
